FAERS Safety Report 24938785 (Version 1)
Quarter: 2025Q1

REPORT INFORMATION
  Report Type: Spontaneous
  Country: US (occurrence: None)
  Receive Date: 20250206
  Receipt Date: 20250206
  Transmission Date: 20250409
  Serious: Yes (Other)
  Sender: FDA-CTU
  Company Number: None

PATIENT
  Age: 16 Year
  Sex: Female
  Weight: 76.2 kg

DRUGS (3)
  1. FERAHEME [Suspect]
     Active Substance: FERUMOXYTOL NON-STOICHIOMETRIC MAGNETITE
     Indication: Iron deficiency
     Route: 042
     Dates: start: 20250128, end: 20250205
  2. Vitamin D 1,250 mcg PO once weekly [Concomitant]
  3. NovaFerrum 50 mg PO once daily [Concomitant]

REACTIONS (3)
  - Urticaria [None]
  - Pruritus [None]
  - Swelling face [None]

NARRATIVE: CASE EVENT DATE: 20250203
